FAERS Safety Report 20194591 (Version 2)
Quarter: 2022Q1

REPORT INFORMATION
  Report Type: Report from Study
  Country: US (occurrence: US)
  Receive Date: 20211216
  Receipt Date: 20220125
  Transmission Date: 20220423
  Serious: Yes (Hospitalization)
  Sender: FDA-Public Use
  Company Number: US-BAYER-2021A267994

PATIENT
  Age: 67 Year
  Sex: Male
  Weight: 92.971 kg

DRUGS (4)
  1. ADEMPAS [Suspect]
     Active Substance: RIOCIGUAT
     Indication: Pulmonary arterial hypertension
     Dosage: UNK
     Route: 048
     Dates: start: 20201106
  2. ADEMPAS [Suspect]
     Active Substance: RIOCIGUAT
     Indication: Pulmonary arterial hypertension
     Dosage: 2.5 MG, TID
     Route: 048
  3. ADEMPAS [Suspect]
     Active Substance: RIOCIGUAT
     Indication: Pulmonary arterial hypertension
     Dosage: 2.5 MG, TID
     Route: 048
  4. UPTRAVI [Concomitant]
     Active Substance: SELEXIPAG

REACTIONS (4)
  - Dyspnoea [None]
  - Fluid retention [None]
  - Hospitalisation [None]
  - Dyspnoea [None]

NARRATIVE: CASE EVENT DATE: 20211115
